FAERS Safety Report 10152774 (Version 1)
Quarter: 2014Q2

REPORT INFORMATION
  Report Type: Spontaneous
  Country: BR (occurrence: BR)
  Receive Date: 20140505
  Receipt Date: 20140505
  Transmission Date: 20141212
  Serious: Yes (Other)
  Sender: FDA-Public Use
  Company Number: BR-PFIZER INC-2014120785

PATIENT
  Age: 63 Year
  Sex: Male
  Weight: 86 kg

DRUGS (8)
  1. LIPITOR [Suspect]
     Indication: BLOOD CHOLESTEROL INCREASED
     Dosage: 20 MG, UNSPECIFIED FREQUENCY
     Route: 048
     Dates: start: 1999
  2. LIPITOR [Suspect]
     Dosage: 10 MG, 1X/DAY
     Route: 048
  3. ALPHAGAN [Concomitant]
     Dosage: UNK
  4. CIALIS DIARIO [Concomitant]
     Dosage: UNK
  5. DIOVAN [Concomitant]
     Dosage: UNK
  6. LANTUS [Concomitant]
     Dosage: UNK
  7. NOVORAPID [Concomitant]
     Dosage: UNK
  8. ZYLORIC [Concomitant]
     Dosage: UNK

REACTIONS (1)
  - Diabetes mellitus [Unknown]
